FAERS Safety Report 16137491 (Version 1)
Quarter: 2019Q1

REPORT INFORMATION
  Report Type: Spontaneous
  Country: FR (occurrence: FR)
  Receive Date: 20190330
  Receipt Date: 20190330
  Transmission Date: 20190418
  Serious: Yes (Hospitalization)
  Sender: FDA-Public Use
  Company Number: FR-AUROBINDO-AUR-APL-2019-016562

PATIENT

DRUGS (2)
  1. PARACETAMOL [Suspect]
     Active Substance: ACETAMINOPHEN
     Indication: POISONING DELIBERATE
     Dosage: 4000 MILLIGRAM (TOTAL)
     Route: 048
     Dates: start: 20190222, end: 20190222
  2. NORDAZ [Suspect]
     Active Substance: NORDAZEPAM
     Indication: POISONING DELIBERATE
     Dosage: 15 DOSAGE FORM (TOTAL)
     Route: 048
     Dates: start: 20190222, end: 20190222

REACTIONS (2)
  - Psychomotor skills impaired [Recovering/Resolving]
  - Bradyphrenia [Recovering/Resolving]

NARRATIVE: CASE EVENT DATE: 20190222
